FAERS Safety Report 6693745-4 (Version None)
Quarter: 2010Q2

REPORT INFORMATION
  Report Type: 
  Country: None (occurrence: None)
  Receive Date: 20100423
  Receipt Date: 20090622
  Transmission Date: 20101027
  Serious: No
  Sender: FDA-Public Use
  Company Number: A0793099A

PATIENT
  Age: 26 Year
  Sex: Female

DRUGS (2)
  1. DEXEDRINE [Suspect]
     Dosage: 10MG PER DAY
     Route: 048
     Dates: start: 20090101
  2. NO CONCURRENT MEDICATION [Concomitant]

REACTIONS (8)
  - DECREASED APPETITE [None]
  - DIZZINESS [None]
  - DYSPEPSIA [None]
  - NAUSEA [None]
  - PAIN [None]
  - THERAPEUTIC RESPONSE UNEXPECTED [None]
  - VULVOVAGINAL MYCOTIC INFECTION [None]
  - WEIGHT DECREASED [None]
